FAERS Safety Report 7618977-X (Version None)
Quarter: 2011Q3

REPORT INFORMATION
  Report Type: 
  Country: None (occurrence: None)
  Receive Date: 20110718
  Receipt Date: 20110707
  Transmission Date: 20111222
  Serious: Yes (Hospitalization)
  Sender: FDA-Public Use
  Company Number: BR-US-EMD SERONO, INC.-7069767

PATIENT
  Sex: Female

DRUGS (6)
  1. REBIF [Suspect]
  2. NAPROXEN [Concomitant]
     Indication: HEADACHE
  3. REBIF [Suspect]
     Dates: start: 20110601
  4. CLONAZEPAM [Concomitant]
     Indication: SLEEP DISORDER
  5. REBIF [Suspect]
     Indication: PRODUCT USED FOR UNKNOWN INDICATION
     Dates: start: 20010419, end: 20110601
  6. MANTIDAN [Concomitant]

REACTIONS (4)
  - EAR INFECTION [None]
  - PYREXIA [None]
  - PNEUMONIA [None]
  - URINARY TRACT INFECTION [None]
